FAERS Safety Report 6578367-8 (Version None)
Quarter: 2010Q1

REPORT INFORMATION
  Report Type: 
  Country: None (occurrence: None)
  Receive Date: 20100211
  Receipt Date: 20100201
  Transmission Date: 20100710
  Serious: No
  Sender: FDA-Public Use
  Company Number: US-B.I. PHARMACEUTICALS,INC./RIDGEFIELD-2010-BP-01264BP

PATIENT
  Sex: Female

DRUGS (1)
  1. SPIRIVA [Suspect]
     Indication: BRONCHITIS CHRONIC
     Dosage: 18 MCG
     Route: 055
     Dates: start: 20100101, end: 20100129

REACTIONS (7)
  - ABDOMINAL PAIN UPPER [None]
  - DIZZINESS [None]
  - DRY MOUTH [None]
  - FALL [None]
  - HEAD INJURY [None]
  - NIGHT SWEATS [None]
  - PERIORBITAL HAEMATOMA [None]
